FAERS Safety Report 15976611 (Version 1)
Quarter: 2019Q1

REPORT INFORMATION
  Report Type: Report from Study
  Country: US (occurrence: US)
  Receive Date: 20190218
  Receipt Date: 20190218
  Transmission Date: 20190418
  Serious: Yes (Other)
  Sender: FDA-Public Use
  Company Number: US-JNJFOC-20190217718

PATIENT
  Age: 68 Year
  Sex: Male

DRUGS (2)
  1. IMBRUVICA [Suspect]
     Active Substance: IBRUTINIB
     Indication: CHRONIC LYMPHOCYTIC LEUKAEMIA
     Route: 048
     Dates: start: 20181030
  2. IMBRUVICA [Suspect]
     Active Substance: IBRUTINIB
     Indication: CHRONIC LYMPHOCYTIC LEUKAEMIA
     Route: 048
     Dates: start: 20190120, end: 20190206

REACTIONS (4)
  - Retinal scar [Recovering/Resolving]
  - Blindness unilateral [Not Recovered/Not Resolved]
  - Eye haemorrhage [Recovering/Resolving]
  - Ocular vascular disorder [Unknown]

NARRATIVE: CASE EVENT DATE: 20190207
